FAERS Safety Report 24164701 (Version 2)
Quarter: 2024Q3

REPORT INFORMATION
  Report Type: Spontaneous
  Country: CA (occurrence: CA)
  Receive Date: 20240801
  Receipt Date: 20240802
  Transmission Date: 20241016
  Serious: Yes (Other)
  Sender: SANDOZ
  Company Number: CA-SANDOZ-SDZ2024CA049209

PATIENT
  Sex: Female

DRUGS (1)
  1. HYRIMOZ [Suspect]
     Active Substance: ADALIMUMAB-ADAZ
     Indication: Crohn^s disease
     Dosage: WEEK 0: 160 MG WEEK 2: 80 MG, WEEK 4: 40 MG THEN EOW;NULL
     Route: 058
     Dates: start: 20240122

REACTIONS (3)
  - Wisdom teeth removal [Unknown]
  - Postoperative thrombosis [Unknown]
  - Drug effect less than expected [Unknown]
